FAERS Safety Report 8500365-5 (Version None)
Quarter: 2012Q3

REPORT INFORMATION
  Report Type: 
  Country: None (occurrence: None)
  Receive Date: 20120705
  Receipt Date: 20120705
  Transmission Date: 20120928
  Serious: Yes (Life-Threatening, Hospitalization)
  Sender: FDA-Public Use
  Company Number: None

PATIENT
  Age: 5 Year
  Sex: Female
  Weight: 18.1439 kg

DRUGS (2)
  1. SINGULAIR [Suspect]
     Indication: ASTHMA
     Dosage: 4 MG, DAILY, PO
     Route: 048
     Dates: start: 20120301, end: 20120701
  2. SINGULAIR [Suspect]
     Indication: RHINITIS
     Dosage: 4 MG, DAILY, PO
     Route: 048
     Dates: start: 20120301, end: 20120701

REACTIONS (12)
  - LOGORRHOEA [None]
  - NIGHTMARE [None]
  - MUSCLE RIGIDITY [None]
  - SOMNOLENCE [None]
  - ABNORMAL BEHAVIOUR [None]
  - PERSONALITY CHANGE [None]
  - EMOTIONAL DISORDER [None]
  - POOR QUALITY SLEEP [None]
  - FALL [None]
  - SKULL FRACTURE [None]
  - CONVULSION [None]
  - DEPRESSED MOOD [None]
